FAERS Safety Report 10099562 (Version 2)
Quarter: 2014Q2

REPORT INFORMATION
  Report Type: Report from Study
  Country: DE (occurrence: DE)
  Receive Date: 20140423
  Receipt Date: 20140513
  Transmission Date: 20141212
  Serious: Yes (Hospitalization)
  Sender: FDA-Public Use
  Company Number: DE-ASTRAZENECA-2014SE27247

PATIENT
  Age: 87 Year
  Sex: Male
  Weight: 64.4 kg

DRUGS (4)
  1. AZD6140 [Suspect]
     Indication: PERIPHERAL ARTERIAL OCCLUSIVE DISEASE
     Route: 048
     Dates: start: 20140108, end: 20140415
  2. HCT (HYDROCHLOROTHIAZIDE) [Suspect]
     Indication: HYPERTENSION
     Route: 048
     Dates: start: 2012, end: 20140415
  3. BISOPROLOL [Concomitant]
     Indication: HYPERTENSION
     Route: 048
     Dates: start: 2012
  4. VALSARTAN [Concomitant]
     Indication: HYPERTENSION
     Route: 048
     Dates: start: 2012

REACTIONS (1)
  - Systemic sclerosis [Not Recovered/Not Resolved]
